FAERS Safety Report 8143351-X (Version None)
Quarter: 2012Q1

REPORT INFORMATION
  Report Type: 
  Country: None (occurrence: None)
  Receive Date: 20120217
  Receipt Date: 20120215
  Transmission Date: 20120608
  Serious: No
  Sender: FDA-Public Use
  Company Number: US-PFIZER INC-2012041627

PATIENT
  Sex: Female
  Weight: 62.585 kg

DRUGS (3)
  1. DEPO-PROVERA [Suspect]
     Indication: MENORRHAGIA
     Dosage: UNK
     Dates: start: 20110101
  2. SYNAREL [Suspect]
     Indication: DYSMENORRHOEA
     Dosage: UNK
     Dates: start: 20060101, end: 20110101
  3. WARFARIN SODIUM [Concomitant]
     Indication: HEART DISEASE CONGENITAL
     Dosage: UNK

REACTIONS (1)
  - WEIGHT INCREASED [None]
